FAERS Safety Report 6658685-5 (Version None)
Quarter: 2010Q1

REPORT INFORMATION
  Report Type: 
  Country: None (occurrence: None)
  Receive Date: 20100330
  Receipt Date: 20100317
  Transmission Date: 20100710
  Serious: Yes (Other)
  Sender: FDA-Public Use
  Company Number: PHHY2010US17196

PATIENT
  Sex: Female

DRUGS (1)
  1. SANDIMMUNE [Suspect]
     Indication: HAEMOLYTIC ANAEMIA
     Dosage: 200 MG DAILY
     Route: 048
     Dates: start: 20100101

REACTIONS (1)
  - BLOOD ALKALINE PHOSPHATASE INCREASED [None]
